FAERS Safety Report 8090396-4 (Version None)
Quarter: 2012Q1

REPORT INFORMATION
  Report Type: 
  Country: None (occurrence: None)
  Receive Date: 20120129
  Receipt Date: 20111130
  Transmission Date: 20120608
  Serious: No
  Sender: FDA-Public Use
  Company Number: US-ABBOTT-11P-163-0879783-00

PATIENT
  Sex: Male
  Weight: 90.8 kg

DRUGS (3)
  1. LAMOTRIGINE [Concomitant]
     Indication: BIPOLAR DISORDER
  2. HUMIRA [Suspect]
     Indication: PSORIASIS
     Dates: end: 20110101
  3. ADDERALL 5 [Concomitant]
     Indication: ATTENTION DEFICIT/HYPERACTIVITY DISORDER

REACTIONS (3)
  - GAIT DISTURBANCE [None]
  - PSORIASIS [None]
  - PLANTAR FASCIITIS [None]
